FAERS Safety Report 8833334 (Version 1)
Quarter: 2012Q4

REPORT INFORMATION
  Report Type: 
  Country: BR (occurrence: BR)
  Receive Date: 20121010
  Receipt Date: 20121010
  Transmission Date: 20130627
  Serious: Yes (Other)
  Sender: FDA-Public Use
  Company Number: BR-ABBOTT-12P-020-0991416-00

PATIENT
  Sex: Female

DRUGS (2)
  1. HUMIRA [Suspect]
     Indication: PSORIASIS
     Dates: start: 201201, end: 20120927
  2. SIMVASTATIN [Suspect]
     Indication: DYSLIPIDAEMIA
     Dates: end: 20121001

REACTIONS (7)
  - Lymphoma [Unknown]
  - Abscess jaw [Not Recovered/Not Resolved]
  - Gingival pain [Not Recovered/Not Resolved]
  - Swelling face [Not Recovered/Not Resolved]
  - Infarction [Not Recovered/Not Resolved]
  - Lymph node pain [Not Recovered/Not Resolved]
  - Dyslipidaemia [Unknown]
